FAERS Safety Report 9701570 (Version 2)
Quarter: 2013Q4

REPORT INFORMATION
  Report Type: Spontaneous
  Country: DK (occurrence: DK)
  Receive Date: 20131121
  Receipt Date: 20131205
  Transmission Date: 20140711
  Serious: No
  Sender: FDA-Public Use
  Company Number: ALCN2013DK005827

PATIENT
  Age: 73 Year
  Sex: Male

DRUGS (1)
  1. BSS [Suspect]
     Dosage: UNK, ONCE/SINGLE
     Route: 031

REACTIONS (1)
  - Uveitis [Unknown]
